FAERS Safety Report 18424874 (Version 3)
Quarter: 2021Q1

REPORT INFORMATION
  Report Type: Spontaneous
  Country: US (occurrence: US)
  Receive Date: 20201026
  Receipt Date: 20210114
  Transmission Date: 20210419
  Serious: No
  Sender: FDA-Public Use
  Company Number: US-GLAXOSMITHKLINE-US2020AMR211000

PATIENT
  Sex: Male

DRUGS (1)
  1. ALBUTEROL SULFATE. [Suspect]
     Active Substance: ALBUTEROL SULFATE
     Indication: PRODUCT USED FOR UNKNOWN INDICATION
     Dosage: UNK

REACTIONS (7)
  - Productive cough [Unknown]
  - Drug ineffective [Unknown]
  - Product complaint [Unknown]
  - Product dose omission issue [Unknown]
  - Dyspnoea [Unknown]
  - Product storage error [Unknown]
  - Underdose [Unknown]
